FAERS Safety Report 5590055-3 (Version None)
Quarter: 2008Q1

REPORT INFORMATION
  Report Type: 
  Country: None (occurrence: None)
  Receive Date: 20080114
  Receipt Date: 20080103
  Transmission Date: 20080703
  Serious: Yes (Hospitalization, Other)
  Sender: FDA-Public Use
  Company Number: US-ELI_LILLY_AND_COMPANY-US200801000393

PATIENT
  Sex: Female
  Weight: 75.737 kg

DRUGS (2)
  1. PROZAC [Suspect]
     Indication: DEPRESSION
     Dosage: UNK, DAILY (1/D)
  2. TOPROL-XL [Concomitant]
     Indication: BLOOD PRESSURE
     Dosage: 25 MG, UNK

REACTIONS (5)
  - HEADACHE [None]
  - MICTURITION URGENCY [None]
  - NAUSEA [None]
  - NEOPLASM MALIGNANT [None]
  - SPINAL OSTEOARTHRITIS [None]
